FAERS Safety Report 9458751 (Version 1)
Quarter: 2013Q3

REPORT INFORMATION
  Report Type: Spontaneous
  Country: US (occurrence: US)
  Receive Date: 20130814
  Receipt Date: 20130814
  Transmission Date: 20140515
  Serious: No
  Sender: FDA-Public Use
  Company Number: US-TARO-2013P1002661

PATIENT
  Age: 55 Year
  Sex: Male
  Weight: 90.72 kg

DRUGS (3)
  1. FLUOCINONIDE [Suspect]
     Route: 061
     Dates: start: 20120326
  2. BENICAR [Concomitant]
     Dates: start: 2011
  3. SALMON OIL PILLS [Concomitant]

REACTIONS (5)
  - Drug ineffective [Recovered/Resolved]
  - Skin atrophy [Recovered/Resolved]
  - Skin fissures [Recovered/Resolved]
  - Eczema [Recovered/Resolved]
  - Drug prescribing error [Recovered/Resolved]
